FAERS Safety Report 6019203-8 (Version None)
Quarter: 2008Q4

REPORT INFORMATION
  Report Type: 
  Country: None (occurrence: None)
  Receive Date: 20081224
  Receipt Date: 20081210
  Transmission Date: 20090506
  Serious: Yes (Other)
  Sender: FDA-Public Use
  Company Number: JP-PFIZER INC-2008098653

PATIENT

DRUGS (7)
  1. SILDENAFIL CITRATE [Suspect]
     Route: 048
     Dates: start: 20081015
  2. GASTER OD [Suspect]
     Route: 048
     Dates: start: 20081002, end: 20081114
  3. FLOLAN [Concomitant]
     Route: 042
     Dates: start: 20001218
  4. WARFARIN SODIUM [Concomitant]
     Route: 048
     Dates: start: 20001207
  5. PARAMIDIN [Concomitant]
     Route: 048
     Dates: start: 20001207
  6. LASIX [Concomitant]
     Route: 048
  7. VASOLAN [Concomitant]
     Route: 048

REACTIONS (1)
  - HEPATIC FUNCTION ABNORMAL [None]
